FAERS Safety Report 20325645 (Version 2)
Quarter: 2022Q1

REPORT INFORMATION
  Report Type: Spontaneous
  Country: AU (occurrence: AU)
  Receive Date: 20220112
  Receipt Date: 20220228
  Transmission Date: 20220423
  Serious: No
  Sender: FDA-Public Use
  Company Number: AU-AMGEN-AUSSP2022004281

PATIENT
  Age: 45 Year
  Sex: Female

DRUGS (3)
  1. NEULASTA [Suspect]
     Active Substance: PEGFILGRASTIM
     Indication: Prophylaxis
     Dosage: 6 MILLIGRAM,  24 HOURS AFTER CHEMO, FORTNIGHTLY
     Route: 058
  2. NEULASTA [Suspect]
     Active Substance: PEGFILGRASTIM
     Dosage: 6 MILLIGRAM, 24 HOURS AFTER CHEMO, FORTNIGHTLY
     Route: 058
  3. NEULASTA [Suspect]
     Active Substance: PEGFILGRASTIM
     Dosage: 6 MILLIGRAM, 24 HOURS AFTER CHEMO, FORTNIGHTLY
     Route: 058

REACTIONS (3)
  - Accidental exposure to product [Unknown]
  - Device physical property issue [Unknown]
  - Wrong technique in product usage process [Unknown]

NARRATIVE: CASE EVENT DATE: 20220108
